FAERS Safety Report 6026625-8 (Version None)
Quarter: 2008Q4

REPORT INFORMATION
  Report Type: 
  Country: None (occurrence: None)
  Receive Date: 20081231
  Receipt Date: 20081211
  Transmission Date: 20090506
  Serious: Yes (Death, Hospitalization)
  Sender: FDA-Public Use
  Company Number: 2008AL012231

PATIENT
  Age: 74 Year
  Sex: Male

DRUGS (10)
  1. DIGOXIN [Suspect]
     Indication: CARDIAC FAILURE CONGESTIVE
     Dosage: 0.125MG, PO
     Route: 048
     Dates: start: 20080101, end: 20080401
  2. COUMADIN [Concomitant]
  3. ASPIRIN [Concomitant]
  4. LIPITOR [Concomitant]
  5. CARVEDILOL [Concomitant]
  6. LASIX [Concomitant]
  7. MULTI-VITAMIN [Concomitant]
  8. RAMIPRIL [Concomitant]
  9. TERAZOSIN HCL [Concomitant]
  10. SPIRONOLACTONE [Concomitant]

REACTIONS (12)
  - ANOREXIA [None]
  - ARTHRALGIA [None]
  - ATRIAL FIBRILLATION [None]
  - BRADYARRHYTHMIA [None]
  - DYSPNOEA [None]
  - ECONOMIC PROBLEM [None]
  - EMOTIONAL DISORDER [None]
  - HYPOTENSION [None]
  - NAUSEA [None]
  - PAIN [None]
  - THERAPEUTIC AGENT TOXICITY [None]
  - THROMBOCYTOPENIA [None]
